FAERS Safety Report 4511698-1 (Version None)
Quarter: 2004Q4

REPORT INFORMATION
  Report Type: 
  Country: None (occurrence: None)
  Receive Date: 20041129
  Receipt Date: 20041115
  Transmission Date: 20050328
  Serious: Yes (Death)
  Sender: FDA-Public Use
  Company Number: US-AMGEN-US099408

PATIENT
  Sex: Male
  Weight: 86.7 kg

DRUGS (11)
  1. SENSIPAR [Suspect]
     Indication: HYPERPARATHYROIDISM SECONDARY
     Route: 048
     Dates: start: 20041030, end: 20041031
  2. HECTORAL [Concomitant]
  3. FERRLECIT FOR INJECTION [Concomitant]
  4. RENAGEL [Concomitant]
  5. ACCUPRIL [Concomitant]
  6. PHOSLO [Concomitant]
  7. DILANTIN [Concomitant]
  8. PREVACID [Concomitant]
  9. CLONIDINE [Concomitant]
  10. PHENERGAN [Concomitant]
  11. BENADRYL [Concomitant]

REACTIONS (1)
  - RESPIRATORY FAILURE [None]
